FAERS Safety Report 11473757 (Version 1)
Quarter: 2015Q3

REPORT INFORMATION
  Report Type: Spontaneous
  Country: US (occurrence: None)
  Receive Date: 20150902
  Receipt Date: 20150902
  Transmission Date: 20151125
  Serious: Yes (Hospitalization)
  Sender: FDA-Public Use
  Company Number: A-NJ2014-105480

PATIENT
  Age: 51 Year
  Sex: Female

DRUGS (3)
  1. VELETRI [Suspect]
     Active Substance: EPOPROSTENOL
     Indication: PULMONARY ARTERIAL HYPERTENSION
     Dosage: 12.9 NG/KG, PER MIN
     Route: 042
     Dates: start: 20130423
  2. COUMADIN [Concomitant]
     Active Substance: WARFARIN SODIUM
  3. REVATIO (SILFENAFIL CITRATE) [Concomitant]

REACTIONS (2)
  - Dyspnoea [None]
  - Platelet count decreased [None]

NARRATIVE: CASE EVENT DATE: 20140907
